FAERS Safety Report 23732527 (Version 1)
Quarter: 2024Q2

REPORT INFORMATION
  Report Type: Spontaneous
  Country: US (occurrence: US)
  Receive Date: 20240411
  Receipt Date: 20240411
  Transmission Date: 20240716
  Serious: No
  Sender: FDA-Public Use
  Company Number: US-SA-SAC20240408000424

PATIENT
  Age: 48 Year
  Sex: Female
  Weight: 89 kg

DRUGS (2)
  1. DUPIXENT [Suspect]
     Active Substance: DUPILUMAB
     Indication: Dermatitis atopic
     Dosage: 300 MG, QOW
     Route: 058
  2. DUPIXENT [Suspect]
     Active Substance: DUPILUMAB
     Dosage: UNK
     Dates: start: 202403

REACTIONS (2)
  - Rebound atopic dermatitis [Unknown]
  - Vision blurred [Unknown]

NARRATIVE: CASE EVENT DATE: 20240301
